FAERS Safety Report 23938696 (Version 1)
Quarter: 2024Q2

REPORT INFORMATION
  Report Type: Spontaneous
  Country: CA (occurrence: CA)
  Receive Date: 20240604
  Receipt Date: 20240604
  Transmission Date: 20240716
  Serious: Yes (Other)
  Sender: FDA-Public Use
  Company Number: CA-The Proactiv LLC-2157754

PATIENT
  Age: 52 Year
  Sex: Male

DRUGS (3)
  1. PROACTIV SOLUTION RENEWING CLEANSER [Suspect]
     Active Substance: BENZOYL PEROXIDE
     Route: 061
     Dates: end: 20240430
  2. PROACTIV REVITALIZING TONER COMBINATION THERAPY ACNE TREATMENT [Suspect]
     Active Substance: SALICYLIC ACID
     Route: 061
     Dates: end: 20240430
  3. PROACTIV REPAIRING TREATMENT [Suspect]
     Active Substance: BENZOYL PEROXIDE
     Route: 061
     Dates: end: 20240430

REACTIONS (2)
  - Hypersensitivity [Recovered/Resolved]
  - Skin cancer [Recovered/Resolved]
